FAERS Safety Report 25620338 (Version 2)
Quarter: 2025Q3

REPORT INFORMATION
  Report Type: Report from Study
  Country: US (occurrence: US)
  Receive Date: 20250730
  Receipt Date: 20250825
  Transmission Date: 20251020
  Serious: No
  Sender: BRISTOL-MYERS SQUIBB COMPANY
  Company Number: US-BRISTOL-MYERS SQUIBB COMPANY-2025-105611

PATIENT
  Age: 72 Year
  Sex: Female
  Weight: 44.6 kg

DRUGS (1)
  1. REVLIMID [Suspect]
     Active Substance: LENALIDOMIDE
     Indication: Plasma cell myeloma
     Dosage: ONCE DAILY FOR 14 DAYS ON, 7 OFF
     Route: 048

REACTIONS (2)
  - Urinary tract infection [Unknown]
  - Blood urine present [Recovered/Resolved]

NARRATIVE: CASE EVENT DATE: 20250727
